FAERS Safety Report 20775342 (Version 12)
Quarter: 2022Q4

REPORT INFORMATION
  Report Type: Report from Study
  Country: US (occurrence: None)
  Receive Date: 20220502
  Receipt Date: 20221014
  Transmission Date: 20230113
  Serious: Yes (Life-Threatening, Hospitalization)
  Sender: FDA-Public Use
  Company Number: US-ROCHE-3039397

PATIENT
  Age: 72 Year
  Sex: Female
  Weight: 97.610 kg

DRUGS (36)
  1. FARICIMAB [Suspect]
     Active Substance: FARICIMAB
     Indication: Diabetic retinal oedema
     Dosage: ON 12/JAN/2022 AT 05:02 PM, RECEIVED MOST RECENT DOSE OF STUDY DRUG ADMIN PRIOR AE/SAE IS 6 MG?ON 05
     Route: 050
     Dates: start: 20201217
  2. RANIBIZUMAB [Suspect]
     Active Substance: RANIBIZUMAB
     Indication: Diabetic retinal oedema
     Dosage: ON 12/JAN/2022, RECEIVED MOST RECENT DOSE OF STUDY DRUG ADMIN PRIOR AE/SAE IS 6 MG
     Route: 050
  3. AFLIBERCEPT [Suspect]
     Active Substance: AFLIBERCEPT
     Indication: Diabetic retinal oedema
     Dosage: ON 12/JAN/2022, 5:22 PM MOST RECENT DOSE OF STUDY DRUG AFLIBERCEPT (2MG) PRIOR TO AE/SAE
     Route: 042
     Dates: start: 20201217
  4. ELIQUIS [Concomitant]
     Active Substance: APIXABAN
     Indication: Atrial fibrillation
     Route: 048
     Dates: start: 201507
  5. CRESTOR [Concomitant]
     Active Substance: ROSUVASTATIN CALCIUM
     Indication: Hypercholesterolaemia
     Route: 048
     Dates: start: 2017
  6. CITALOPRAM [Concomitant]
     Active Substance: CITALOPRAM HYDROBROMIDE
     Indication: Insomnia
     Route: 048
     Dates: start: 201408
  7. TIZANIDINE [Concomitant]
     Active Substance: TIZANIDINE
     Indication: Muscle spasms
     Route: 048
     Dates: start: 201801
  8. BIO X4 [Concomitant]
     Route: 048
     Dates: start: 2017
  9. MAGNESIUM [Concomitant]
     Active Substance: MAGNESIUM
     Route: 048
     Dates: start: 2017
  10. COMBIGAN [Concomitant]
     Active Substance: BRIMONIDINE TARTRATE\TIMOLOL MALEATE
     Indication: Glaucoma
     Route: 047
     Dates: start: 201810
  11. OMEGA 3 [Concomitant]
     Active Substance: CAPSAICIN
     Route: 048
     Dates: start: 20190528
  12. SINGULAIR [Concomitant]
     Active Substance: MONTELUKAST SODIUM
     Indication: Seasonal allergy
     Route: 048
     Dates: start: 20190705
  13. TROSPIUM CHLORIDE [Concomitant]
     Active Substance: TROSPIUM CHLORIDE
     Indication: Urinary incontinence
     Route: 048
     Dates: start: 20190711
  14. SYSTANE ULTRA [Concomitant]
     Active Substance: POLYETHYLENE GLYCOL 400\PROPYLENE GLYCOL
     Route: 047
     Dates: start: 20190221
  15. FRESH KOTE [Concomitant]
     Indication: Dry eye
     Route: 047
     Dates: start: 20190813
  16. LOTREL [Concomitant]
     Active Substance: AMLODIPINE BESYLATE\BENAZEPRIL HYDROCHLORIDE
     Indication: Hypertension
     Route: 048
     Dates: start: 20191216
  17. METOPROLOL TARTRATE [Concomitant]
     Active Substance: METOPROLOL TARTRATE
     Indication: Hypertension
     Route: 048
     Dates: start: 20191226
  18. MELATONIN [Concomitant]
     Active Substance: MELATONIN
     Route: 048
     Dates: start: 20200527
  19. ZINC GLUCONATE [Concomitant]
     Active Substance: ZINC GLUCONATE
     Route: 048
     Dates: start: 20200527
  20. LEVOTHYROXINE [Concomitant]
     Active Substance: LEVOTHYROXINE
     Indication: Thyroidectomy
     Route: 048
     Dates: start: 20200630
  21. MIRALAX [Concomitant]
     Active Substance: POLYETHYLENE GLYCOL 3350
     Route: 048
     Dates: start: 20201121
  22. TYLENOL [Concomitant]
     Active Substance: ACETAMINOPHEN
     Indication: Procedural pain
     Route: 048
     Dates: start: 20210318
  23. COLACE [Concomitant]
     Active Substance: DOCUSATE SODIUM
     Route: 048
     Dates: start: 20210321
  24. AMLODIPINE [Concomitant]
     Active Substance: AMLODIPINE BESYLATE
     Indication: Hypertension
     Route: 048
     Dates: start: 20191216
  25. BENAZEPRIL [Concomitant]
     Active Substance: BENAZEPRIL HYDROCHLORIDE
     Indication: Hypertension
     Route: 048
     Dates: start: 20191216
  26. MYRBETRIQ [Concomitant]
     Active Substance: MIRABEGRON
     Indication: Incontinence
     Route: 048
     Dates: start: 20211008
  27. CELEXA [Concomitant]
     Active Substance: CITALOPRAM HYDROBROMIDE
  28. ESTRACE [Concomitant]
     Active Substance: ESTRADIOL
  29. IMDUR [Concomitant]
     Active Substance: ISOSORBIDE MONONITRATE
     Indication: Hypertension
     Route: 048
     Dates: start: 202202, end: 202203
  30. MONTELUKAST [Concomitant]
     Active Substance: MONTELUKAST SODIUM
  31. PLAVIX [Concomitant]
     Active Substance: CLOPIDOGREL BISULFATE
  32. ROSUVASTATIN [Concomitant]
     Active Substance: ROSUVASTATIN
  33. VITAMIN C [Concomitant]
     Active Substance: ASCORBIC ACID
  34. ZYRTEC [Concomitant]
     Active Substance: CETIRIZINE HYDROCHLORIDE
  35. AMIODARONE [Concomitant]
     Active Substance: AMIODARONE
     Route: 048
     Dates: start: 202202
  36. ESTRADIOL [Concomitant]
     Active Substance: ESTRADIOL

REACTIONS (9)
  - Myocardial infarction [Recovering/Resolving]
  - Acute respiratory failure [Not Recovered/Not Resolved]
  - Malnutrition [Not Recovered/Not Resolved]
  - Sepsis [Recovered/Resolved]
  - Arteriosclerosis coronary artery [Not Recovered/Not Resolved]
  - Thrombocytopenia [Recovering/Resolving]
  - End stage renal disease [Not Recovered/Not Resolved]
  - Atelectasis [Recovering/Resolving]
  - Acute left ventricular failure [Not Recovered/Not Resolved]

NARRATIVE: CASE EVENT DATE: 20220220
